FAERS Safety Report 6024706-6 (Version None)
Quarter: 2008Q4

REPORT INFORMATION
  Report Type: 
  Country: None (occurrence: None)
  Receive Date: 20081231
  Receipt Date: 20081223
  Transmission Date: 20090506
  Serious: Yes (Hospitalization, Other)
  Sender: FDA-Public Use
  Company Number: CH-NOVOPROD-282681

PATIENT
  Age: 74 Year
  Sex: Female

DRUGS (6)
  1. NOVOLOG MIX 70/30 [Suspect]
     Indication: TYPE 1 DIABETES MELLITUS
  2. PLAVIX [Concomitant]
  3. ALDACTONE [Concomitant]
  4. CO-ENATEC [Concomitant]
  5. PRAVALOTIN [Concomitant]
  6. LANTUS [Concomitant]

REACTIONS (2)
  - HYPOGLYCAEMIC UNCONSCIOUSNESS [None]
  - HYPOTHERMIA [None]
